FAERS Safety Report 6520735-4 (Version None)
Quarter: 2009Q4

REPORT INFORMATION
  Report Type: 
  Country: None (occurrence: None)
  Receive Date: 20091229
  Receipt Date: 20091221
  Transmission Date: 20100525
  Serious: Yes (Hospitalization, Other)
  Sender: FDA-Public Use
  Company Number: GXKR2009ZA13713

PATIENT
  Sex: Female

DRUGS (1)
  1. CLOZAPINE [Suspect]
     Dosage: 10 G, UNK
     Route: 064

REACTIONS (9)
  - ABDOMINAL DISTENSION [None]
  - CAESAREAN SECTION [None]
  - CONSTIPATION [None]
  - DRUG EXPOSURE DURING PREGNANCY [None]
  - DRUG TOXICITY [None]
  - FOETAL DISTRESS SYNDROME [None]
  - GASTROINTESTINAL HYPOMOTILITY [None]
  - GASTROINTESTINAL SOUNDS ABNORMAL [None]
  - PREMATURE BABY [None]
